FAERS Safety Report 9698962 (Version 1)
Quarter: 2013Q4

REPORT INFORMATION
  Report Type: Spontaneous
  Country: MY (occurrence: MY)
  Receive Date: 20131120
  Receipt Date: 20131120
  Transmission Date: 20140711
  Serious: Yes (Other)
  Sender: FDA-Public Use
  Company Number: MY-PFIZER INC-2013332291

PATIENT
  Sex: 0

DRUGS (1)
  1. DILANTIN [Suspect]

REACTIONS (1)
  - Blindness [Unknown]
